FAERS Safety Report 9361860 (Version 2)
Quarter: 2013Q3

REPORT INFORMATION
  Report Type: Spontaneous
  Country: CA (occurrence: CA)
  Receive Date: 20130621
  Receipt Date: 20130809
  Transmission Date: 20140515
  Serious: Yes (Other)
  Sender: FDA-Public Use
  Company Number: CA-GLAXOSMITHKLINE-A1027052A

PATIENT
  Age: 21 Year
  Sex: Female
  Weight: 52.3 kg

DRUGS (1)
  1. LAMOTRIGINE [Suspect]
     Indication: CONVULSION
     Dosage: 50MG TWICE PER DAY
     Route: 065
     Dates: start: 201305, end: 201306

REACTIONS (6)
  - Neutropenia [Recovered/Resolved]
  - Dermatitis allergic [Recovered/Resolved]
  - Alanine aminotransferase increased [Recovering/Resolving]
  - Protein urine present [Unknown]
  - Platelet disorder [Recovered/Resolved]
  - Malaise [Recovered/Resolved]
